FAERS Safety Report 8574800-0 (Version None)
Quarter: 2012Q3

REPORT INFORMATION
  Report Type: 
  Country: None (occurrence: None)
  Receive Date: 20120807
  Receipt Date: 20120727
  Transmission Date: 20120928
  Serious: Yes (Other)
  Sender: FDA-Public Use
  Company Number: AU-BRISTOL-MYERS SQUIBB COMPANY-16659773

PATIENT
  Age: 63 Year
  Sex: Female
  Weight: 65 kg

DRUGS (6)
  1. FOLIC ACID [Concomitant]
  2. METHOTREXATE [Concomitant]
  3. ACETAMINOPHEN [Concomitant]
  4. LEUCOVORIN CALCIUM [Concomitant]
  5. ORENCIA [Suspect]
     Indication: RHEUMATOID ARTHRITIS
     Dosage: LAST DOSE ON 21MAY12,SC ORENCIA 125MG INJ FOR 97DAYS ON 25JUN12
     Route: 042
     Dates: start: 20110305
  6. PREDNISONE [Concomitant]

REACTIONS (1)
  - CARPAL TUNNEL SYNDROME [None]
